FAERS Safety Report 4678264-9 (Version None)
Quarter: 2005Q2

REPORT INFORMATION
  Report Type: 
  Country: None (occurrence: None)
  Receive Date: 20050527
  Receipt Date: 20050519
  Transmission Date: 20051028
  Serious: Yes (Other)
  Sender: FDA-Public Use
  Company Number: HQWYE791203MAR03

PATIENT
  Sex: Female

DRUGS (3)
  1. DIMETAPP (BROMPHENIRAMINE/HENYLPROPANOLAMINE,  EXTENTAB) [Suspect]
     Dosage: ORAL
     Route: 048
  2. DRISTAN EXTRA STRENGTH [Suspect]
     Dosage: ORAL
     Route: 048
  3. ROBITUSSIN CF (DEXTROMETHORHAN HYDROCHLORIDE/PHENYLPROPANOLAMINE HYDRO [Suspect]
     Dosage: ORAL
     Route: 048

REACTIONS (1)
  - CEREBROVASCULAR ACCIDENT [None]
